FAERS Safety Report 9046188 (Version 2)
Quarter: 2013Q2

REPORT INFORMATION
  Report Type: Report from Study
  Country: ZA (occurrence: ZA)
  Receive Date: 20130201
  Receipt Date: 20130423
  Transmission Date: 20140414
  Serious: Yes (Other)
  Sender: FDA-Public Use
  Company Number: PHHY2013ZA007382

PATIENT
  Age: 67 Year
  Sex: Female

DRUGS (8)
  1. ACLASTA [Suspect]
     Indication: OSTEOPOROSIS
     Dosage: 5 MG/ 100 ML ONCE A YEAR
     Route: 042
     Dates: start: 2011
  2. ACLASTA [Suspect]
     Dosage: 5 MG/ 100 ML ONCE A YEAR
     Route: 042
     Dates: start: 201203
  3. CALCIUM ^SANDOZ^ [Concomitant]
     Dosage: 0.3 G, UNK
  4. MAGNESIUM CITRATE [Concomitant]
     Dosage: UNK UKN, UNK
  5. CALCIFEROL [Concomitant]
     Dosage: UNK UKN, UNK
  6. ADCO-OMEPRAZOLE [Concomitant]
     Indication: ANTACID THERAPY
     Dosage: 20 MG, QD
  7. EVISTA [Concomitant]
     Indication: OSTEOPOROSIS
     Dosage: UNK UKN, UNK
  8. PROTOS (STRONTIUM RANELATE) [Concomitant]
     Indication: OSTEOPOROSIS
     Dosage: UNK UKN, UNK

REACTIONS (3)
  - Pathological fracture [Unknown]
  - Tooth disorder [Unknown]
  - Musculoskeletal discomfort [Unknown]
